FAERS Safety Report 5152414-2 (Version None)
Quarter: 2006Q4

REPORT INFORMATION
  Report Type: 
  Country: None (occurrence: None)
  Receive Date: 20061116
  Receipt Date: 20060526
  Transmission Date: 20070319
  Serious: Yes (Hospitalization)
  Sender: FDA-Public Use
  Company Number: US-ELI_LILLY_AND_COMPANY-US200605006819

PATIENT
  Sex: Female
  Weight: 106.12 kg

DRUGS (1)
  1. ZYPREXA [Suspect]
     Indication: BIPOLAR I DISORDER

REACTIONS (3)
  - CHOLELITHIASIS [None]
  - DIABETES MELLITUS [None]
  - WEIGHT INCREASED [None]
